FAERS Safety Report 15389170 (Version 1)
Quarter: 2018Q3

REPORT INFORMATION
  Report Type: Spontaneous
  Country: ES (occurrence: ES)
  Receive Date: 20180917
  Receipt Date: 20180917
  Transmission Date: 20181010
  Serious: Yes (Other)
  Sender: FDA-Public Use
  Company Number: ES-ROCHE-2117079

PATIENT
  Sex: Female
  Weight: 54 kg

DRUGS (4)
  1. VALIUM [Suspect]
     Active Substance: DIAZEPAM
     Indication: ANXIETY
     Dosage: EXPIRY DATE? /10/2022
     Route: 048
  2. AMARYL [Concomitant]
     Active Substance: GLIMEPIRIDE
     Indication: DIABETES MELLITUS
     Route: 065
  3. VALIUM [Suspect]
     Active Substance: DIAZEPAM
     Route: 048
  4. TRANKIMAZIN [Concomitant]
     Active Substance: ALPRAZOLAM
     Route: 065

REACTIONS (19)
  - Ear infection [Unknown]
  - Red blood cell count increased [Unknown]
  - Anxiety [Unknown]
  - Chest pain [Unknown]
  - Drug ineffective [Unknown]
  - Abdominal pain [Unknown]
  - Product quality issue [Unknown]
  - Weight decreased [Unknown]
  - Bone pain [Unknown]
  - Tachycardia [Recovered/Resolved]
  - Goitre [Unknown]
  - Drug resistance [Unknown]
  - Drug hypersensitivity [Unknown]
  - Pain in extremity [Unknown]
  - Cholelithiasis [Unknown]
  - Liver disorder [Unknown]
  - Cholecystitis [Unknown]
  - Back pain [Unknown]
  - Gastric disorder [Unknown]
